FAERS Safety Report 10742259 (Version 1)
Quarter: 2015Q1

REPORT INFORMATION
  Report Type: Spontaneous
  Country: US (occurrence: None)
  Receive Date: 20150123
  Receipt Date: 20150123
  Transmission Date: 20150721
  Serious: No
  Sender: FDA-Public Use
  Company Number: None

PATIENT
  Sex: Male
  Weight: 78.02 kg

DRUGS (8)
  1. MELATONIN [Concomitant]
     Active Substance: MELATONIN
  2. BEFOREBATINE [Concomitant]
  3. THIODRIXENE HCI [Concomitant]
  4. CHOLECALCIFEROL (VIT D 3) [Concomitant]
  5. CVS COLD + HOT [Concomitant]
  6. ELEVE/NAPROXEN SODIUM [Concomitant]
  7. RISPERDAL [Suspect]
     Active Substance: RISPERIDONE
     Indication: PSYCHOTIC DISORDER
     Route: 048
     Dates: start: 1997, end: 20121004
  8. COMBIVENT ROSPIMAT [Concomitant]

REACTIONS (3)
  - Tardive dyskinesia [None]
  - Unevaluable event [None]
  - Erectile dysfunction [None]

NARRATIVE: CASE EVENT DATE: 1997
